FAERS Safety Report 6907306-2 (Version None)
Quarter: 2010Q3

REPORT INFORMATION
  Report Type: 
  Country: None (occurrence: None)
  Receive Date: 20100730
  Receipt Date: 20090630
  Transmission Date: 20110219
  Serious: Yes (Hospitalization)
  Sender: FDA-Public Use
  Company Number: 012

PATIENT
  Age: 72 Year
  Sex: Male
  Weight: 82.5547 kg

DRUGS (3)
  1. DR. FRANK'S JOINT + MUSCLE PAIN RELIEF [Suspect]
     Indication: ARTHRALGIA
     Dosage: 6 SPRAYS 6X5 / DAY
  2. DR FRANK'S HERBAL JOINT CAPSULES [Suspect]
  3. EQUATE [Concomitant]

REACTIONS (1)
  - ULCER HAEMORRHAGE [None]
